FAERS Safety Report 5601868-3 (Version None)
Quarter: 2008Q1

REPORT INFORMATION
  Report Type: 
  Country: None (occurrence: None)
  Receive Date: 20080124
  Receipt Date: 20080114
  Transmission Date: 20080703
  Serious: Yes (Other)
  Sender: FDA-Public Use
  Company Number: AU-PFIZER INC-2008005674

PATIENT
  Sex: Female

DRUGS (1)
  1. GENORAL [Suspect]

REACTIONS (1)
  - ATRIAL FIBRILLATION [None]
